FAERS Safety Report 18295602 (Version 1)
Quarter: 2020Q3

REPORT INFORMATION
  Report Type: Spontaneous
  Country: US (occurrence: US)
  Receive Date: 20200922
  Receipt Date: 20200922
  Transmission Date: 20201103
  Serious: No
  Sender: FDA-Public Use
  Company Number: US-BAYER-2020-204806

PATIENT
  Age: 24 Year
  Sex: Female

DRUGS (1)
  1. MIRENA [Suspect]
     Active Substance: LEVONORGESTREL
     Indication: CONTRACEPTION
     Dosage: 20 ?G PER DAY CONTINUOUSLY
     Route: 015
     Dates: start: 2012

REACTIONS (4)
  - Abdominal pain lower [None]
  - Device use issue [Not Recovered/Not Resolved]
  - Procedural pain [None]
  - Urinary tract infection [None]

NARRATIVE: CASE EVENT DATE: 2012
